FAERS Safety Report 9438470 (Version 1)
Quarter: 2013Q3

REPORT INFORMATION
  Report Type: Spontaneous
  Country: US (occurrence: US)
  Receive Date: 20130802
  Receipt Date: 20130802
  Transmission Date: 20140515
  Serious: No
  Sender: FDA-Public Use
  Company Number: US-BRISTOL-MYERS SQUIBB COMPANY-17342775

PATIENT
  Age: 67 Year
  Sex: Male
  Weight: 108.84 kg

DRUGS (13)
  1. COUMADIN [Suspect]
     Indication: CARDIAC FAILURE CONGESTIVE
     Dosage: M/W/F,12MG AND ON S/T/TH/S, 12.5MG
  2. COUMADIN [Suspect]
     Indication: ATRIAL FIBRILLATION
     Dosage: M/W/F,12MG AND ON S/T/TH/S, 12.5MG
  3. WARFARIN SODIUM [Suspect]
  4. SPIRONOLACTONE [Concomitant]
  5. CARVEDILOL [Concomitant]
  6. PRILOSEC [Concomitant]
  7. VITAMIN D [Concomitant]
     Dosage: 1DF= 700 U
  8. CHOLESTYRAMINE [Concomitant]
     Dosage: 1DF=1/4TSP
  9. METFORMIN [Concomitant]
  10. FUROSEMIDE [Concomitant]
  11. LANTUS [Concomitant]
     Dosage: 1DF=15U
  12. ASPIRIN [Concomitant]
  13. FISH OIL [Concomitant]

REACTIONS (1)
  - International normalised ratio fluctuation [Unknown]
